APPROVED DRUG PRODUCT: IBUPROFEN
Active Ingredient: IBUPROFEN
Strength: 800MG
Dosage Form/Route: TABLET;ORAL
Application: A071999 | Product #001
Applicant: PHARMOBEDIENT CONSULTING LLC
Approved: Dec 3, 1987 | RLD: No | RS: No | Type: DISCN